FAERS Safety Report 9918812 (Version 2)
Quarter: 2014Q1

REPORT INFORMATION
  Report Type: Spontaneous
  Country: US (occurrence: US)
  Receive Date: 20140224
  Receipt Date: 20140325
  Transmission Date: 20141002
  Serious: Yes (Hospitalization, Other)
  Sender: FDA-Public Use
  Company Number: US-SA-2014SA020828

PATIENT
  Sex: Male

DRUGS (4)
  1. APIDRA SOLOSTAR [Suspect]
     Indication: PRODUCT USED FOR UNKNOWN INDICATION
     Dosage: 20-22 UNITS
     Route: 058
  2. LANTUS SOLOSTAR [Suspect]
     Route: 058
  3. SOLOSTAR [Concomitant]
  4. SOLOSTAR [Concomitant]

REACTIONS (9)
  - Gallbladder disorder [Unknown]
  - Arthropathy [Unknown]
  - Arthralgia [Unknown]
  - Weight decreased [Unknown]
  - Diverticulitis [Unknown]
  - Intervertebral disc disorder [Unknown]
  - Hypoaesthesia [Unknown]
  - Blood glucose increased [Unknown]
  - Blood glucose decreased [Unknown]
